FAERS Safety Report 18729320 (Version 1)
Quarter: 2021Q1

REPORT INFORMATION
  Report Type: Spontaneous
  Country: ES (occurrence: ES)
  Receive Date: 20210112
  Receipt Date: 20210112
  Transmission Date: 20210419
  Serious: Yes (Other)
  Sender: FDA-Public Use
  Company Number: ES-009507513-2101ESP003919

PATIENT
  Age: 55 Year
  Sex: Male
  Weight: 79.5 kg

DRUGS (11)
  1. FLUCONAZOLE. [Concomitant]
     Active Substance: FLUCONAZOLE
     Indication: ANTIFUNGAL PROPHYLAXIS
     Dosage: 200 MG/5 ML
     Route: 048
     Dates: start: 20200408, end: 20200427
  2. CIRCADIN [Concomitant]
     Active Substance: MELATONIN
     Indication: INSOMNIA
     Dosage: 8 MG AL D?A
     Route: 048
     Dates: start: 20200406, end: 20200513
  3. FUROSEMIDE. [Concomitant]
     Active Substance: FUROSEMIDE
     Dosage: 250 MG AL D?A
     Route: 040
     Dates: start: 20200415, end: 20200420
  4. SEROQUEL [Concomitant]
     Active Substance: QUETIAPINE FUMARATE
     Indication: DELIRIUM
     Dosage: 300 MG AL D?A
     Route: 048
     Dates: start: 20200412, end: 20200505
  5. CEFTOLOZANE SULFATE  (+) TAZOBACTAM SODIUM [Suspect]
     Active Substance: CEFTOLOZANE SULFATE\TAZOBACTAM SODIUM
     Indication: PSEUDOMONAS INFECTION
     Dosage: 2 GRAM, Q8H
     Route: 041
     Dates: start: 20200417, end: 20200502
  6. HIBOR [Concomitant]
     Indication: ANTICOAGULANT THERAPY
     Dosage: 7500 UI AL D?A
     Route: 058
     Dates: start: 20200419, end: 20200429
  7. TOBRAMYCIN. [Concomitant]
     Active Substance: TOBRAMYCIN
     Indication: INFECTION
     Dosage: 450 MG AL D?A
     Route: 041
     Dates: start: 20200416, end: 20200429
  8. VANCOMYCIN [Concomitant]
     Active Substance: VANCOMYCIN
     Indication: INFECTION
     Dosage: 3 G AL D?A
     Route: 041
     Dates: start: 20200416, end: 20200426
  9. PRAVASTATIN. [Concomitant]
     Active Substance: PRAVASTATIN
     Indication: HYPERCHOLESTEROLAEMIA
     Dosage: 20 MG AL D?A
     Route: 048
     Dates: start: 20200325, end: 20200513
  10. REXER FLAS [Concomitant]
     Active Substance: MIRTAZAPINE
     Indication: DELIRIUM
     Dosage: 30 MG AL D?A
     Route: 048
     Dates: start: 20200405, end: 20200429
  11. FLUMIL (ACETYLCYSTEINE) [Concomitant]
     Active Substance: ACETYLCYSTEINE
     Dosage: 1800 MG AL D?A
     Route: 048
     Dates: start: 20200325, end: 20200514

REACTIONS (1)
  - Eosinophilic cellulitis [Recovered/Resolved]

NARRATIVE: CASE EVENT DATE: 20200420
